FAERS Safety Report 9039612 (Version 1)
Quarter: 2013Q1

REPORT INFORMATION
  Report Type: Report from Study
  Country: US (occurrence: US)
  Receive Date: 20130129
  Receipt Date: 20130129
  Transmission Date: 20140127
  Serious: No
  Sender: FDA-Public Use
  Company Number: US-ABBOTT-12P-163-0936473-00

PATIENT
  Age: 55 Year
  Sex: Female

DRUGS (7)
  1. HUMIRA 40 MG/0.8 ML PEN [Suspect]
     Indication: PSORIASIS
     Dosage: 80 MG LOADING DOSE
     Dates: start: 20120512
  2. NOVOLOG [Concomitant]
     Indication: PRODUCT USED FOR UNKNOWN INDICATION
     Dosage: SLIDING SCALE 38 UNITS, 52 UNITS DINNER
  3. LANTUS [Concomitant]
     Indication: PRODUCT USED FOR UNKNOWN INDICATION
     Dosage: 72 UNITS AT BEDTIME
  4. SYMBICORT [Concomitant]
     Indication: SEASONAL ALLERGY
     Dosage: 160/4.5 TWICE A DAY
  5. PROVENTIL [Concomitant]
     Indication: SEASONAL ALLERGY
     Dosage: RESCUE INHALER PRN
  6. SINGULAR [Concomitant]
     Indication: SEASONAL ALLERGY
     Dosage: 10 MG EVERY DAY
  7. LORATADINE [Concomitant]
     Indication: HYPERSENSITIVITY
     Dosage: 1-2 DAY AS NEEDED

REACTIONS (5)
  - Injection site bruising [Recovered/Resolved]
  - Injection site pain [Recovering/Resolving]
  - Injection site pain [Recovered/Resolved]
  - Local swelling [Recovering/Resolving]
  - Pruritus [Recovering/Resolving]
